FAERS Safety Report 10879833 (Version 1)
Quarter: 2015Q1

REPORT INFORMATION
  Report Type: Spontaneous
  Country: US (occurrence: US)
  Receive Date: 20150302
  Receipt Date: 20150302
  Transmission Date: 20150721
  Serious: No
  Sender: FDA-Public Use
  Company Number: US-PFIZER INC-2015069645

PATIENT
  Age: 60 Year

DRUGS (14)
  1. RANITIDINE [Suspect]
     Active Substance: RANITIDINE\RANITIDINE HYDROCHLORIDE
     Dosage: UNK
  2. LISINOPRIL. [Suspect]
     Active Substance: LISINOPRIL
     Dosage: UNK
  3. TOPROL XL [Suspect]
     Active Substance: METOPROLOL SUCCINATE
     Dosage: UNK
  4. MOBIC [Suspect]
     Active Substance: MELOXICAM
     Dosage: UNK
  5. NITRIC ACID [Suspect]
     Active Substance: NITRIC ACID
     Dosage: UNK
  6. COREG [Suspect]
     Active Substance: CARVEDILOL
     Dosage: UNK
  7. ZYLOPRIM [Suspect]
     Active Substance: ALLOPURINOL
     Dosage: UNK
  8. CATAPRES [Suspect]
     Active Substance: CLONIDINE HYDROCHLORIDE
     Dosage: UNK
  9. LIPITOR [Suspect]
     Active Substance: ATORVASTATIN CALCIUM
     Dosage: UNK
  10. EXFORGE [Suspect]
     Active Substance: AMLODIPINE BESYLATE\VALSARTAN
     Dosage: UNK
  11. TRICOR [Suspect]
     Active Substance: FENOFIBRATE
     Dosage: UNK
  12. HYDRALAZINE [Suspect]
     Active Substance: HYDRALAZINE HYDROCHLORIDE
     Dosage: UNK
  13. HUMALOG [Suspect]
     Active Substance: INSULIN LISPRO
     Dosage: UNK
  14. LANTUS [Suspect]
     Active Substance: INSULIN GLARGINE
     Dosage: UNK

REACTIONS (1)
  - Drug hypersensitivity [Unknown]
